FAERS Safety Report 20907817 (Version 2)
Quarter: 2022Q2

REPORT INFORMATION
  Report Type: Spontaneous
  Country: IT (occurrence: IT)
  Receive Date: 20220602
  Receipt Date: 20220607
  Transmission Date: 20220721
  Serious: Yes (Other)
  Sender: FDA-Public Use
  Company Number: IT-PFIZER INC-202200787169

PATIENT
  Age: 38 Year
  Sex: Female

DRUGS (1)
  1. TOVIAZ [Suspect]
     Active Substance: FESOTERODINE FUMARATE
     Dosage: 800 MG, DAILY (1 TABLET IN THE MORNING)
     Dates: start: 20220523

REACTIONS (2)
  - Syncope [Unknown]
  - Seizure [Unknown]

NARRATIVE: CASE EVENT DATE: 20220528
